FAERS Safety Report 10695497 (Version 1)
Quarter: 2014Q4

REPORT INFORMATION
  Report Type: Spontaneous
  Country: US (occurrence: None)
  Receive Date: 20141223
  Receipt Date: 20141223
  Transmission Date: 20150529
  Serious: No
  Sender: FDA-Public Use
  Company Number: 1000070561

PATIENT
  Age: 86 Year
  Sex: Male

DRUGS (5)
  1. AMLODIPINE [Concomitant]
     Active Substance: AMLODIPINE BESYLATE
  2. SIMVASTATIN. [Concomitant]
     Active Substance: SIMVASTATIN
  3. MIRTAZAPINE. [Concomitant]
     Active Substance: MIRTAZAPINE
  4. LINZESS [Suspect]
     Active Substance: LINACLOTIDE
     Indication: IRRITABLE BOWEL SYNDROME
     Dosage: ON MONDAYS, WEDNESDAYS, AND FRIDAYS
     Route: 048
     Dates: start: 20120202
  5. MIRALAX (POLYETHYLENE GLYCOL) [Concomitant]

REACTIONS (2)
  - Gastrooesophageal reflux disease [None]
  - Off label use [None]

NARRATIVE: CASE EVENT DATE: 20120202
